FAERS Safety Report 23070973 (Version 3)
Quarter: 2023Q4

REPORT INFORMATION
  Report Type: Spontaneous
  Country: US (occurrence: US)
  Receive Date: 20231016
  Receipt Date: 20231128
  Transmission Date: 20240109
  Serious: No
  Sender: FDA-Public Use
  Company Number: US-PFIZER INC-PV202300168893

PATIENT
  Age: 79 Year
  Sex: Female
  Weight: 78.005 kg

DRUGS (1)
  1. PAXLOVID [Suspect]
     Active Substance: NIRMATRELVIR\RITONAVIR
     Indication: COVID-19 treatment
     Dosage: UNK
     Dates: start: 20231010

REACTIONS (3)
  - Dysgeusia [Not Recovered/Not Resolved]
  - Sleep disorder [Unknown]
  - Product label confusion [Unknown]

NARRATIVE: CASE EVENT DATE: 20231010
